FAERS Safety Report 22521796 (Version 1)
Quarter: 2023Q2

REPORT INFORMATION
  Report Type: Report from Study
  Country: FR (occurrence: FR)
  Receive Date: 20230605
  Receipt Date: 20230605
  Transmission Date: 20230721
  Serious: Yes (Other)
  Sender: FDA-Public Use
  Company Number: FR-002147023-NVSC2023FR095877

PATIENT
  Age: 14 Year
  Sex: Male

DRUGS (1)
  1. OMNITROPE [Suspect]
     Active Substance: SOMATROPIN
     Indication: Product used for unknown indication
     Dosage: 1.4 MG, QD (IN A PRE-FILLED PEN)
     Route: 065
     Dates: start: 20230416

REACTIONS (8)
  - Haemorrhage [Unknown]
  - Feeling abnormal [Unknown]
  - Pain in extremity [Unknown]
  - Coagulopathy [Unknown]
  - Synovial cyst [Unknown]
  - Tooth abscess [Unknown]
  - Product preparation error [Unknown]
  - Device use issue [Unknown]

NARRATIVE: CASE EVENT DATE: 20230420
